FAERS Safety Report 4644318-6 (Version None)
Quarter: 2005Q2

REPORT INFORMATION
  Report Type: 
  Country: None (occurrence: None)
  Receive Date: 20050422
  Receipt Date: 20050411
  Transmission Date: 20051028
  Serious: Yes (Other)
  Sender: FDA-Public Use
  Company Number: 2005059333

PATIENT
  Age: 85 Year
  Sex: Female

DRUGS (10)
  1. NEURONTIN [Suspect]
     Indication: CONVULSION
     Route: 048
  2. OXAZEPAM [Suspect]
     Indication: ILL-DEFINED DISORDER
     Dosage: 75 MG (1 IN 1 D), ORAL
     Route: 048
     Dates: start: 20040101
  3. SULPIRIDE (SULPIRIDE) [Concomitant]
  4. BROMAZEPAM (BROMAZEPAM) [Concomitant]
  5. AMLODIPINE BESYLATE [Concomitant]
  6. BUFLOMEDIL (BUFLOMEDIL) [Concomitant]
  7. BETAHISTINE (BETAHISTINE) [Concomitant]
  8. ALENDRONATE SODIUM [Concomitant]
  9. OMEPRAZOLE [Concomitant]
  10. MIANSERIN HYRDOCHLORIDE (MIANSERIN HYDROCHLORIDE) [Concomitant]

REACTIONS (3)
  - CEREBRAL DISORDER [None]
  - DRUG WITHDRAWAL CONVULSIONS [None]
  - LEUKOARAIOSIS [None]
